FAERS Safety Report 18340411 (Version 1)
Quarter: 2020Q4

REPORT INFORMATION
  Report Type: Other
  Country: CA (occurrence: CA)
  Receive Date: 20201002
  Receipt Date: 20201002
  Transmission Date: 20210113
  Serious: Yes (Congenital Anomaly)
  Sender: FDA-Public Use
  Company Number: CA-DUCHESNAY-2020CA000098

PATIENT

DRUGS (11)
  1. OXAZEPAM. [Suspect]
     Active Substance: OXAZEPAM
     Indication: DEPRESSION
     Dosage: 15 MILLIGRAM, QD
     Route: 064
  2. VITAMIN B12 [Suspect]
     Active Substance: CYANOCOBALAMIN
     Indication: PRODUCT USED FOR UNKNOWN INDICATION
     Dosage: 1200 MICROGRAM, QD
     Route: 064
  3. VITAMIN D NOS [Suspect]
     Active Substance: VITAMIN D NOS
     Indication: PRODUCT USED FOR UNKNOWN INDICATION
     Dosage: 10000 INTERNATIONAL UNIT, ONCE A WEEK
     Route: 064
  4. DOXYLAMINE SUCCINATE/PYRIDOXINE HYDROCHLORIDE [Suspect]
     Active Substance: DOXYLAMINE SUCCINATE\PYRIDOXINE HYDROCHLORIDE
     Indication: MORNING SICKNESS
     Dosage: 1 DOSAGE FORM, QD
     Route: 064
  5. MONTELUKAST [Suspect]
     Active Substance: MONTELUKAST SODIUM
     Indication: ASTHMA
     Dosage: 10 MILLIGRAM, QD
     Route: 064
  6. ASPIRIN NOS [Suspect]
     Active Substance: ASPIRIN
     Indication: PREGNANCY
     Dosage: 80 MILLIGRAM, QD
     Route: 064
  7. ESCITALOPRAM [Suspect]
     Active Substance: ESCITALOPRAM OXALATE
     Indication: DEPRESSION
     Dosage: 20 MILLIGRAM, QD
     Route: 064
  8. MATERNA [FOLIC ACID;IRON;MINERALS NOS;VITAMINS NOS] [Suspect]
     Active Substance: MINERALS\VITAMINS
     Indication: PREGNANCY
     Dosage: 1 DOSAGE FORM, QD
     Route: 064
  9. SALBUTAMOL [Suspect]
     Active Substance: ALBUTEROL
     Indication: ASTHMA
     Dosage: 100 MICROGRAM, PRN
     Route: 064
  10. CITALOPRAM [Suspect]
     Active Substance: CITALOPRAM HYDROBROMIDE
     Indication: DEPRESSION
     Dosage: 10 MILLIGRAM, QD
     Route: 064
  11. VYVANSE [Suspect]
     Active Substance: LISDEXAMFETAMINE DIMESYLATE
     Indication: DEPRESSION
     Dosage: 20 MILLIGRAM, QD
     Route: 064

REACTIONS (1)
  - Fallot^s tetralogy [Unknown]
